FAERS Safety Report 8338014-1 (Version None)
Quarter: 2012Q2

REPORT INFORMATION
  Report Type: 
  Country: None (occurrence: None)
  Receive Date: 20120504
  Receipt Date: 20120427
  Transmission Date: 20120825
  Serious: Yes (Hospitalization)
  Sender: FDA-Public Use
  Company Number: US-ABBOTT-11P-163-0848599-00

PATIENT
  Sex: Female
  Weight: 98.518 kg

DRUGS (14)
  1. URSODIOL [Concomitant]
     Indication: GALLBLADDER DISORDER
     Dates: start: 20020101
  2. OMEPRAZOLE [Concomitant]
     Indication: GASTROOESOPHAGEAL REFLUX DISEASE
  3. MULTI-VITAMINS [Concomitant]
     Indication: VITAMIN SUPPLEMENTATION
  4. LORAZEPAM [Concomitant]
     Indication: PRODUCT USED FOR UNKNOWN INDICATION
  5. PAROXETINE [Concomitant]
     Indication: NERVOUSNESS
  6. VERAPAMIL [Concomitant]
     Indication: HYPERTENSION
  7. FOLIC ACID [Concomitant]
     Indication: VITAMIN SUPPLEMENTATION
  8. ASTELIN [Concomitant]
     Indication: PRODUCT USED FOR UNKNOWN INDICATION
  9. LISINOPRIL [Concomitant]
     Indication: BLOOD PRESSURE
  10. CALCIUM CARBONATE [Concomitant]
     Indication: PRODUCT USED FOR UNKNOWN INDICATION
  11. TYLENOL (CAPLET) [Concomitant]
     Indication: PRODUCT USED FOR UNKNOWN INDICATION
  12. HUMIRA [Suspect]
     Indication: PSORIASIS
     Dates: start: 20110501
  13. ALLEGRA [Concomitant]
     Indication: PRODUCT USED FOR UNKNOWN INDICATION
  14. TRIAMCINOLONE [Concomitant]
     Indication: PSORIASIS
     Route: 061

REACTIONS (11)
  - BACTERIAL INFECTION [None]
  - BITE [None]
  - ARTHRALGIA [None]
  - INJECTION SITE SWELLING [None]
  - DEVICE MALFUNCTION [None]
  - ANXIETY [None]
  - INJECTION SITE HAEMATOMA [None]
  - CELLULITIS [None]
  - INJECTION SITE ERYTHEMA [None]
  - PSORIASIS [None]
  - NEEDLE ISSUE [None]
